FAERS Safety Report 4728374-2 (Version None)
Quarter: 2005Q3

REPORT INFORMATION
  Report Type: 
  Country: None (occurrence: None)
  Receive Date: 20050729
  Receipt Date: 20050525
  Transmission Date: 20060218
  Serious: Yes (Other)
  Sender: FDA-Public Use
  Company Number: 2005UW08202

PATIENT
  Age: 7 Year
  Sex: Male

DRUGS (2)
  1. PULMICORT RESPULES [Suspect]
     Indication: BRONCHITIS
     Route: 055
     Dates: start: 20050526
  2. XOPENEX [Suspect]
     Indication: COUGH
     Dates: start: 20050526

REACTIONS (5)
  - ASTHMA [None]
  - COUGH [None]
  - CROUP INFECTIOUS [None]
  - LARYNGOSPASM [None]
  - RHINITIS [None]
